FAERS Safety Report 4509909-1 (Version None)
Quarter: 2004Q4

REPORT INFORMATION
  Report Type: 
  Country: None (occurrence: None)
  Receive Date: 20041124
  Receipt Date: 20041116
  Transmission Date: 20050328
  Serious: Yes (Life-Threatening)
  Sender: FDA-Public Use
  Company Number: GBWYE206617NOV04

PATIENT
  Sex: Female
  Weight: 15 kg

DRUGS (5)
  1. ENBREL [Suspect]
     Indication: POLYARTHRITIS
     Route: 058
     Dates: start: 20031219
  2. METHOTREXATE [Concomitant]
     Indication: ARTHRITIS
     Route: 058
     Dates: start: 20021015
  3. METHOTREXATE [Concomitant]
     Route: 058
     Dates: start: 20040401
  4. FELDENE [Concomitant]
     Indication: POLYARTHRITIS
     Route: 048
     Dates: start: 20030901
  5. FELDENE [Concomitant]
     Route: 048
     Dates: start: 20040426

REACTIONS (1)
  - VARICELLA [None]
